FAERS Safety Report 9123535 (Version 1)
Quarter: 2013Q1

REPORT INFORMATION
  Report Type: Spontaneous
  Country: GB (occurrence: None)
  Receive Date: 20130129
  Receipt Date: 20130129
  Transmission Date: 20140127
  Serious: Yes (Other)
  Sender: FDA-Public Use
  Company Number: AUR-APL-2013-00900

PATIENT
  Age: 54 Year
  Sex: Male
  Weight: 79.52 kg

DRUGS (1)
  1. AMOXICILLIN+CLAVULANIC ACID (AMOXICILLIN, CLAVULANIC ACID) [Suspect]
     Indication: POST PROCEDURAL INFECTION
     Dosage: 525 MG, ORAL
     Route: 048
     Dates: start: 20121231, end: 20130101

REACTIONS (2)
  - Abdominal pain upper [None]
  - Vomiting [None]
